FAERS Safety Report 6058464-6 (Version None)
Quarter: 2009Q1

REPORT INFORMATION
  Report Type: 
  Country: None (occurrence: None)
  Receive Date: 20090128
  Receipt Date: 20090128
  Transmission Date: 20090719
  Serious: Yes (Hospitalization)
  Sender: FDA-Public Use
  Company Number: None

PATIENT
  Sex: Female
  Weight: 64.09 kg

DRUGS (1)
  1. TEMOZOLOMIDE [Suspect]
     Dosage: 1650 MG

REACTIONS (5)
  - HEPATIC ENZYME INCREASED [None]
  - HYPONATRAEMIA [None]
  - MENINGITIS [None]
  - PANCYTOPENIA [None]
  - SEPSIS [None]
